FAERS Safety Report 4459540-1 (Version None)
Quarter: 2004Q3

REPORT INFORMATION
  Report Type: 
  Country: None (occurrence: None)
  Receive Date: 20040910
  Receipt Date: 20040614
  Transmission Date: 20050211
  Serious: No
  Sender: FDA-Public Use
  Company Number: 2004218959US

PATIENT
  Sex: Female

DRUGS (6)
  1. BEXTRA [Suspect]
  2. MORPHINE [Concomitant]
  3. SUBOXONE [Concomitant]
  4. DOXIDAN (DANTRON) [Concomitant]
  5. VISTARIL [Concomitant]
  6. PYRIDIUM [Concomitant]

REACTIONS (1)
  - RESTLESSNESS [None]
